FAERS Safety Report 7235006-0 (Version None)
Quarter: 2011Q1

REPORT INFORMATION
  Report Type: 
  Country: None (occurrence: None)
  Receive Date: 20110120
  Receipt Date: 20110111
  Transmission Date: 20110831
  Serious: Yes (Hospitalization)
  Sender: FDA-Public Use
  Company Number: DE-JNJFOC-20101200381

PATIENT
  Age: 24 Year
  Sex: Male
  Weight: 68 kg

DRUGS (4)
  1. REMICADE [Suspect]
     Indication: COLITIS ULCERATIVE
     Dosage: DOSE 2
     Route: 042
  2. AZATHIOPRINE [Suspect]
     Indication: COLITIS ULCERATIVE
  3. REMICADE [Suspect]
     Dosage: DOSE 1
     Route: 042
  4. PREDNISOLONE [Suspect]
     Indication: COLITIS ULCERATIVE
     Route: 048

REACTIONS (1)
  - CYTOMEGALOVIRUS INFECTION [None]
